FAERS Safety Report 12546848 (Version 3)
Quarter: 2017Q1

REPORT INFORMATION
  Report Type: Spontaneous
  Country: US (occurrence: US)
  Receive Date: 20160711
  Receipt Date: 20170320
  Transmission Date: 20170428
  Serious: Yes (Hospitalization, Other)
  Sender: FDA-Public Use
  Company Number: US-BAUSCH-BL-2016-016286

PATIENT
  Age: 68 Year
  Sex: Female
  Weight: 109.87 kg

DRUGS (2)
  1. XIFAXAN [Suspect]
     Active Substance: RIFAXIMIN
     Indication: NON-ALCOHOLIC STEATOHEPATITIS
     Route: 048
     Dates: start: 201602
  2. XIFAXAN [Suspect]
     Active Substance: RIFAXIMIN
     Route: 065
     Dates: start: 20160408

REACTIONS (8)
  - Liver disorder [Unknown]
  - Gait disturbance [Not Recovered/Not Resolved]
  - Fluid overload [Recovered/Resolved]
  - Blood count abnormal [Unknown]
  - Chronic kidney disease [Unknown]
  - Internal haemorrhage [Recovered/Resolved]
  - Ammonia increased [Unknown]
  - Off label use [Unknown]

NARRATIVE: CASE EVENT DATE: 201606
